FAERS Safety Report 17989703 (Version 2)
Quarter: 2020Q4

REPORT INFORMATION
  Report Type: Spontaneous
  Country: US (occurrence: US)
  Receive Date: 20200707
  Receipt Date: 20201230
  Transmission Date: 20210113
  Serious: Yes (Hospitalization, Other)
  Sender: FDA-Public Use
  Company Number: US-NAPPMUNDI-USA-2020-0155782

PATIENT
  Age: 34 Year
  Sex: Male

DRUGS (2)
  1. OXYCONTIN [Suspect]
     Active Substance: OXYCODONE HYDROCHLORIDE
     Indication: PRODUCT USED FOR UNKNOWN INDICATION
     Dosage: 80 MG, BID
     Route: 048
  2. OXYCONTIN [Suspect]
     Active Substance: OXYCODONE HYDROCHLORIDE
     Dosage: 800 MG, QD PRN
     Route: 048

REACTIONS (9)
  - Drug dependence [Recovered/Resolved]
  - Mental impairment [Unknown]
  - Withdrawal syndrome [Recovered/Resolved]
  - Memory impairment [Unknown]
  - Ill-defined disorder [Unknown]
  - Overdose [Recovered/Resolved]
  - Brain injury [Unknown]
  - Seizure [Recovered/Resolved]
  - Product prescribing issue [Unknown]

NARRATIVE: CASE EVENT DATE: 20060202
